FAERS Safety Report 4961641-6 (Version None)
Quarter: 2006Q1

REPORT INFORMATION
  Report Type: 
  Country: None (occurrence: None)
  Receive Date: 20060329
  Receipt Date: 20060315
  Transmission Date: 20060701
  Serious: Yes (Death)
  Sender: FDA-Public Use
  Company Number: 2006JP000375

PATIENT
  Age: 82 Year
  Sex: Female

DRUGS (13)
  1. TACROLIMUS CAPSULES (TACROLIMUS CAPSULES)CAPSULE [Suspect]
     Indication: RHEUMATOID ARTHRITIS
     Dosage: 1.5 MG, UID/QD, ORAL
     Route: 048
     Dates: start: 20051111, end: 20060215
  2. RHEUMATREX [Suspect]
     Indication: RHEUMATOID ARTHRITIS
     Dosage: 8 MG, WEEKLY, ORAL
     Route: 048
     Dates: start: 20020101, end: 20060215
  3. PREDNISOLONE [Suspect]
     Indication: RHEUMATOID ARTHRITIS
     Dosage: SEE IMAGE, ORAL
     Route: 048
     Dates: start: 20060215
  4. MUCOSTA (REBAMIPIDE) TABLET [Concomitant]
  5. MOBIC [Concomitant]
  6. BENET (RISEDRONATE SODIUM) TABLET [Concomitant]
  7. HEAVY KAMA G (MAGNESIUM OXIDE) POWDER [Concomitant]
  8. CALBLOCK TABLET [Concomitant]
  9. OLMETEC (OLMESARTAN MEDOXOMIL) TABLET [Concomitant]
  10. BISOPROLOL FUMARATE [Concomitant]
  11. SIGMART (NICORANDIL) TABLET [Concomitant]
  12. ALDACTONE-A TABLET [Concomitant]
  13. LIVALO (PITAVASTATIN CALCIUM) TABLET [Concomitant]

REACTIONS (4)
  - ARTHRALGIA [None]
  - NASOPHARYNGITIS [None]
  - PNEUMOCYSTIS JIROVECI PNEUMONIA [None]
  - PNEUMONIA BACTERIAL [None]
